FAERS Safety Report 13067129 (Version 1)
Quarter: 2016Q4

REPORT INFORMATION
  Report Type: Spontaneous
  Country: RU (occurrence: None)
  Receive Date: 20161227
  Receipt Date: 20161227
  Transmission Date: 20170207
  Serious: Yes (Hospitalization)
  Sender: FDA-Public Use
  Company Number: RU2016K8477SPO

PATIENT
  Age: 66 Year
  Sex: Female

DRUGS (3)
  1. BIOSULIN H (INSULIN) [Suspect]
     Active Substance: INSULIN HUMAN
     Indication: PRODUCT USED FOR UNKNOWN INDICATION
     Route: 058
  2. ENAP (ENALAPRIL) TABLET [Suspect]
     Active Substance: ENALAPRIL
     Indication: PRODUCT USED FOR UNKNOWN INDICATION
     Route: 048
  3. LANTUS [Suspect]
     Active Substance: INSULIN GLARGINE
     Indication: PRODUCT USED FOR UNKNOWN INDICATION
     Route: 058

REACTIONS (3)
  - Therapy non-responder [None]
  - Hypertensive crisis [None]
  - Hyperglycaemia [None]

NARRATIVE: CASE EVENT DATE: 201610
